FAERS Safety Report 7641731-X (Version None)
Quarter: 2011Q3

REPORT INFORMATION
  Report Type: 
  Country: None (occurrence: None)
  Receive Date: 20110727
  Receipt Date: 20110727
  Transmission Date: 20111222
  Serious: Yes (Hospitalization)
  Sender: FDA-Public Use
  Company Number: None

PATIENT
  Sex: Female
  Weight: 46.18 kg

DRUGS (2)
  1. CISPLATIN [Suspect]
     Dosage: 74MG
  2. DOXORUBICIN HYDROCHLORIDE [Suspect]
     Dosage: 67 MG

REACTIONS (2)
  - HAEMOTHORAX [None]
  - PNEUMONIA [None]
